FAERS Safety Report 5604331-9 (Version None)
Quarter: 2008Q1

REPORT INFORMATION
  Report Type: 
  Country: None (occurrence: None)
  Receive Date: 20080128
  Receipt Date: 20080121
  Transmission Date: 20080703
  Serious: Yes (Death, Hospitalization)
  Sender: FDA-Public Use
  Company Number: B0504174A

PATIENT
  Age: 85 Year
  Sex: Female

DRUGS (14)
  1. VALTREX [Suspect]
     Indication: HERPES ZOSTER
     Dosage: 1000MG THREE TIMES PER DAY
     Route: 048
     Dates: start: 20071227, end: 20071229
  2. NICERGOLINE [Concomitant]
     Route: 048
  3. TOLEDOMIN [Concomitant]
     Route: 048
  4. PAXIL [Concomitant]
     Route: 048
  5. MAGLAX [Concomitant]
     Route: 048
  6. UNKNOWN DRUG [Concomitant]
     Route: 048
  7. TOWARAT L [Concomitant]
     Route: 048
  8. SPIRONOLACTONE [Concomitant]
     Route: 048
  9. FLUVOXAMINE MALEATE [Concomitant]
     Route: 048
  10. UNKNOWN DRUG [Concomitant]
     Dosage: 81MG PER DAY
     Route: 048
  11. SERTRALINE HYDROCHLORIDE [Concomitant]
     Route: 065
  12. UNKNOWN DRUG [Concomitant]
     Route: 048
  13. PERORIC [Concomitant]
     Route: 048
  14. ETICALM [Concomitant]
     Route: 048

REACTIONS (5)
  - ALTERED STATE OF CONSCIOUSNESS [None]
  - BLOOD CREATININE INCREASED [None]
  - BLOOD POTASSIUM INCREASED [None]
  - BLOOD UREA INCREASED [None]
  - RENAL FAILURE [None]
